FAERS Safety Report 8276122-4 (Version None)
Quarter: 2012Q2

REPORT INFORMATION
  Report Type: 
  Country: None (occurrence: None)
  Receive Date: 20120405
  Receipt Date: 20120403
  Transmission Date: 20120825
  Serious: Yes (Hospitalization)
  Sender: FDA-Public Use
  Company Number: 2010SP020858

PATIENT
  Age: 31 Year
  Sex: Female
  Weight: 105.2345 kg

DRUGS (5)
  1. ACTOS [Concomitant]
  2. LISINOPRIL [Concomitant]
  3. NUVARING [Suspect]
     Indication: CONTRACEPTION
     Dosage: ;QM;VAG
     Route: 067
     Dates: start: 20080515, end: 20080817
  4. MULTI-VITAMIN [Concomitant]
  5. TYLENOL (CAPLET) [Concomitant]

REACTIONS (9)
  - PULMONARY EMBOLISM [None]
  - PULMONARY HYPERTENSION [None]
  - ANAEMIA [None]
  - HYPOTENSION [None]
  - UTERINE LEIOMYOMA [None]
  - TREATMENT NONCOMPLIANCE [None]
  - BLOOD GLUCOSE INCREASED [None]
  - MENORRHAGIA [None]
  - DILATATION VENTRICULAR [None]
